FAERS Safety Report 20050612 (Version 2)
Quarter: 2021Q4

REPORT INFORMATION
  Report Type: Report from Study
  Country: BE (occurrence: BE)
  Receive Date: 20211109
  Receipt Date: 20211123
  Transmission Date: 20220303
  Serious: Yes (Hospitalization)
  Sender: FDA-Public Use
  Company Number: BE-AMGEN-BELCT2021171969

PATIENT
  Age: 65 Year
  Sex: Female
  Weight: 96.3 kg

DRUGS (7)
  1. AMG-510 [Suspect]
     Active Substance: AMG-510
     Indication: Non-small cell lung cancer stage IV
     Dosage: 240 MILLIGRAM
     Route: 048
     Dates: start: 20210920
  2. AMG-510 [Suspect]
     Active Substance: AMG-510
     Indication: K-ras gene mutation
     Dosage: UNK
     Route: 048
     Dates: start: 202111
  3. BISOPROLOL [Concomitant]
     Active Substance: BISOPROLOL
     Dosage: 5 MILLIGRAM
     Route: 048
     Dates: start: 1990
  4. ULTIBRO BREEZHALER [INDACATEROL MALEATE] [Concomitant]
     Dosage: 85 MICROGRAM
     Route: 048
     Dates: start: 2018
  5. CODETHYLINE [Concomitant]
     Dosage: 5 MILLIGRAM
     Route: 048
     Dates: start: 20210906
  6. EXFORGE [Concomitant]
     Active Substance: AMLODIPINE BESYLATE\VALSARTAN
     Dosage: 10.16 MILLIGRAM
     Route: 048
     Dates: start: 1999
  7. ACETAMINOPHEN [Concomitant]
     Active Substance: ACETAMINOPHEN
     Dosage: 1 GRAM
     Route: 048
     Dates: start: 20211101, end: 20211101

REACTIONS (1)
  - Pneumonia bacterial [Not Recovered/Not Resolved]

NARRATIVE: CASE EVENT DATE: 20211102
